FAERS Safety Report 8433447-7 (Version None)
Quarter: 2012Q2

REPORT INFORMATION
  Report Type: 
  Country: None (occurrence: None)
  Receive Date: 20120613
  Receipt Date: 20120608
  Transmission Date: 20120825
  Serious: Yes (Death, Other)
  Sender: FDA-Public Use
  Company Number: PHEH2012US001901

PATIENT
  Sex: Female

DRUGS (1)
  1. GILENYA [Suspect]
     Indication: RELAPSING-REMITTING MULTIPLE SCLEROSIS
     Dosage: 0.5 MG, QD
     Route: 048
     Dates: start: 20110201

REACTIONS (5)
  - CONVULSION [None]
  - MULTIPLE SCLEROSIS RELAPSE [None]
  - DEATH [None]
  - URINARY TRACT INFECTION [None]
  - PNEUMONIA [None]
